FAERS Safety Report 4324581-1 (Version None)
Quarter: 2004Q1

REPORT INFORMATION
  Report Type: 
  Country: None (occurrence: None)
  Receive Date: 20040323
  Receipt Date: 20040316
  Transmission Date: 20041129
  Serious: Yes (Hospitalization)
  Sender: FDA-Public Use
  Company Number: TPA2004A00333

PATIENT
  Age: 80 Year
  Sex: Female

DRUGS (8)
  1. ACTOS [Suspect]
     Indication: DIABETES MELLITUS NON-INSULIN-DEPENDENT
     Dosage: 15 MG, 1 IN 1 D, PER ORAL
     Route: 048
     Dates: start: 20030602, end: 20031212
  2. ACCUPRIL (QUINAPRIL HYDROCHLORIDE) (40 MILLIGRAM) [Concomitant]
  3. ZOCOR (SIMVASTATIN) (20 MILLIGRAM) [Concomitant]
  4. METOPROLOL (METOPROLOL) (50 MILLIGRAM) [Concomitant]
  5. NORVASC (AMLODIPINE) (5 MILLIGRAM) [Concomitant]
  6. ISOSORBIDE (ISOSORBIDE) (30 MILLIGRAM) [Concomitant]
  7. NPH INSULIN [Concomitant]
  8. LEVOTHYROID (LEVOTHYROXINE SODIUM) [Concomitant]

REACTIONS (1)
  - PULMONARY OEDEMA [None]
